FAERS Safety Report 9682072 (Version 1)
Quarter: 2013Q4

REPORT INFORMATION
  Report Type: Report from Study
  Country: BE (occurrence: BE)
  Receive Date: 20131111
  Receipt Date: 20131111
  Transmission Date: 20140711
  Serious: Yes (Hospitalization)
  Sender: FDA-Public Use
  Company Number: BE-BAXTER-2013BAX043606

PATIENT
  Age: 15 Year
  Sex: Male

DRUGS (4)
  1. FEIBA 1000 U, POUDRE ET SOLVANT POUR SOLUTION INJECTABLE [Suspect]
     Indication: FACTOR VIII DEFICIENCY
     Dosage: 1000 U X 2
     Route: 051
     Dates: start: 20120514
  2. FEIBA 1000 U, POUDRE ET SOLVANT POUR SOLUTION INJECTABLE [Suspect]
     Dosage: 1000 U X 4
     Route: 051
     Dates: start: 20131030
  3. FEIBA 1000 U, POUDRE ET SOLVANT POUR SOLUTION INJECTABLE [Suspect]
     Dosage: 1000 U X 4
     Route: 051
     Dates: start: 20131101, end: 20131101
  4. FEIBA 1000 U, POUDRE ET SOLVANT POUR SOLUTION INJECTABLE [Suspect]
     Route: 051

REACTIONS (3)
  - Arthralgia [Not Recovered/Not Resolved]
  - Pyrexia [Not Recovered/Not Resolved]
  - Haemarthrosis [Not Recovered/Not Resolved]
